FAERS Safety Report 9601828 (Version 1)
Quarter: 2013Q4

REPORT INFORMATION
  Report Type: Spontaneous
  Country: ES (occurrence: None)
  Receive Date: 20131002
  Receipt Date: 20131002
  Transmission Date: 20140711
  Serious: Yes (Other)
  Sender: FDA-Public Use
  Company Number: AUR-APL-2013-08111

PATIENT
  Age: 21 Year
  Sex: Female

DRUGS (2)
  1. LAMOTRIGINE (LAMOTRIGINE) [Suspect]
     Indication: PETIT MAL EPILEPSY
     Dosage: (25 MG ) , UNKNOWN
  2. KEPPRA (LEVETIRACETAM) [Concomitant]

REACTIONS (7)
  - Nausea [None]
  - Vomiting [None]
  - Headache [None]
  - Back pain [None]
  - Arthralgia [None]
  - Tremor [None]
  - Musculoskeletal stiffness [None]
